FAERS Safety Report 15429721 (Version 1)
Quarter: 2018Q3

REPORT INFORMATION
  Report Type: Spontaneous
  Country: US (occurrence: US)
  Receive Date: 20180920
  Receipt Date: 20180920
  Transmission Date: 20181010
  Serious: Yes (Death)
  Sender: FDA-Public Use
  Company Number: None

PATIENT
  Age: 60 Year
  Sex: Female

DRUGS (4)
  1. OXYCODONE [Concomitant]
     Active Substance: OXYCODONE
  2. IPRATROPIUM/SOL ALBUTEROL [Concomitant]
  3. OXAZEPAM. [Concomitant]
     Active Substance: OXAZEPAM
  4. COSENTYX [Suspect]
     Active Substance: SECUKINUMAB
     Indication: PSORIATIC ARTHROPATHY
     Route: 058
     Dates: start: 20180418

REACTIONS (1)
  - Death [None]

NARRATIVE: CASE EVENT DATE: 20180918
